FAERS Safety Report 25788388 (Version 1)
Quarter: 2025Q3

REPORT INFORMATION
  Report Type: Spontaneous
  Country: GB (occurrence: GB)
  Receive Date: 20250910
  Receipt Date: 20250910
  Transmission Date: 20251021
  Serious: Yes (Other)
  Sender: PFIZER
  Company Number: GB-PFIZER INC-PV202500108235

PATIENT
  Sex: Female

DRUGS (1)
  1. DOXORUBICIN [Suspect]
     Active Substance: DOXORUBICIN
     Indication: Sarcoma uterus
     Dates: start: 202402, end: 202402

REACTIONS (4)
  - Sarcoma uterus [Unknown]
  - Malignant neoplasm progression [Unknown]
  - Small intestinal obstruction [Unknown]
  - Peritoneal disorder [Unknown]
